FAERS Safety Report 14916394 (Version 1)
Quarter: 2018Q2

REPORT INFORMATION
  Report Type: Spontaneous
  Country: IT (occurrence: IT)
  Receive Date: 20180519
  Receipt Date: 20180519
  Transmission Date: 20180711
  Serious: Yes (Death, Other)
  Sender: FDA-Public Use
  Company Number: IT-ROCHE-2125093

PATIENT
  Age: 51 Year
  Sex: Male

DRUGS (1)
  1. RITUXIMAB. [Suspect]
     Active Substance: RITUXIMAB
     Indication: CHRONIC LYMPHOCYTIC LEUKAEMIA
     Dosage: 375 MG/M2, UNK (FOUR WEEKLY STANDARD DOSES)
     Route: 065
     Dates: start: 200207

REACTIONS (3)
  - Chronic lymphocytic leukaemia recurrent [Unknown]
  - Hepatic function abnormal [Fatal]
  - Hepatitis B reactivation [Fatal]

NARRATIVE: CASE EVENT DATE: 200409
